FAERS Safety Report 7273223-4 (Version None)
Quarter: 2011Q1

REPORT INFORMATION
  Report Type: 
  Country: None (occurrence: None)
  Receive Date: 20110203
  Receipt Date: 20110125
  Transmission Date: 20110831
  Serious: Yes (Other)
  Sender: FDA-Public Use
  Company Number: US-ELI_LILLY_AND_COMPANY-US201101006337

PATIENT
  Age: 32 Year
  Sex: Male

DRUGS (4)
  1. CYMBALTA [Suspect]
     Dosage: UNK, UNKNOWN
  2. CHANTIX [Concomitant]
     Indication: SMOKING CESSATION THERAPY
  3. CYMBALTA [Suspect]
     Dosage: 120 MG, UNKNOWN
  4. CYMBALTA [Suspect]
     Indication: DEPRESSION
     Dosage: 30 MG, UNKNOWN

REACTIONS (2)
  - DRUG INTERACTION [None]
  - PHYSICAL ASSAULT [None]
